FAERS Safety Report 5895313-0 (Version None)
Quarter: 2008Q3

REPORT INFORMATION
  Report Type: 
  Country: None (occurrence: None)
  Receive Date: 20080924
  Receipt Date: 20080915
  Transmission Date: 20090109
  Serious: Yes (Hospitalization)
  Sender: FDA-Public Use
  Company Number: NL-AMGEN-UK307834

PATIENT
  Sex: Female

DRUGS (4)
  1. NEULASTA [Suspect]
     Indication: DRUG USE FOR UNKNOWN INDICATION
     Dates: start: 20080711
  2. DOCETAXEL [Concomitant]
     Dates: start: 20080711
  3. DOXORUBICIN HYDROCHLORIDE [Concomitant]
     Dates: start: 20080711
  4. CYCLOPHOSPHAMIDE [Concomitant]
     Dates: start: 20080711

REACTIONS (3)
  - CHEST PAIN [None]
  - DYSPNOEA [None]
  - MYALGIA [None]
